FAERS Safety Report 7655196-5 (Version None)
Quarter: 2011Q3

REPORT INFORMATION
  Report Type: 
  Country: None (occurrence: None)
  Receive Date: 20110804
  Receipt Date: 20110725
  Transmission Date: 20111222
  Serious: Yes (Other)
  Sender: FDA-Public Use
  Company Number: GB-UCBSA-031675

PATIENT
  Sex: Female
  Weight: 60 kg

DRUGS (4)
  1. VIMPAT [Suspect]
     Indication: EPILEPSY
     Dosage: DOSE PER INTAKE 100. TOTAL DAILY DOSE: 200
     Route: 048
     Dates: start: 20090101
  2. KEPPRA [Concomitant]
     Dosage: DOSE PER INTAKE 750. TOTAL DAILY DOSE: 1500
     Route: 048
  3. PRIMIDONE [Concomitant]
     Dosage: DOSE PER INTAKE 250. TOTAL DAILY DAILY DOSE: 500
     Route: 048
  4. LEVOTHYROXINE SODIUM [Concomitant]

REACTIONS (6)
  - INTERVERTEBRAL DISC PROTRUSION [None]
  - HYPOAESTHESIA [None]
  - HYPOAESTHESIA ORAL [None]
  - PALPITATIONS [None]
  - DRY EYE [None]
  - TINNITUS [None]
